FAERS Safety Report 10665308 (Version 1)
Quarter: 2014Q4

REPORT INFORMATION
  Report Type: Spontaneous
  Country: FR (occurrence: FR)
  Receive Date: 20141219
  Receipt Date: 20141219
  Transmission Date: 20150529
  Serious: Yes (Life-Threatening, Hospitalization, Other)
  Sender: FDA-Public Use
  Company Number: FR-ASTRAZENECA-2014SE95877

PATIENT
  Age: 13806 Day
  Sex: Male

DRUGS (12)
  1. LEVOTHYROX [Concomitant]
     Active Substance: LEVOTHYROXINE
  2. AERIUS [Concomitant]
     Active Substance: DESLORATADINE
  3. ROCALTROL [Concomitant]
     Active Substance: CALCITRIOL
  4. KARDEGIC [Concomitant]
     Active Substance: ASPIRIN LYSINE
  5. BACTRIM [Interacting]
     Active Substance: SULFAMETHOXAZOLE\TRIMETHOPRIM
     Indication: PNEUMOCYSTIS JIROVECII PNEUMONIA
     Route: 048
     Dates: start: 20141028, end: 20141106
  6. BACTRIM [Interacting]
     Active Substance: SULFAMETHOXAZOLE\TRIMETHOPRIM
     Indication: PNEUMOCYSTIS JIROVECII PNEUMONIA
     Route: 048
     Dates: end: 20141112
  7. INEXIUM [Concomitant]
     Active Substance: ESOMEPRAZOLE
  8. KINERET [Concomitant]
     Active Substance: ANAKINRA
  9. ARANESP [Concomitant]
     Active Substance: DARBEPOETIN ALFA
  10. ATACAND [Suspect]
     Active Substance: CANDESARTAN CILEXETIL
     Route: 048
     Dates: start: 201406, end: 20141106
  11. CORTANCYL [Concomitant]
     Active Substance: PREDNISONE
  12. INNOVAIR [Concomitant]
     Active Substance: BECLOMETHASONE DIPROPIONATE\FORMOTEROL

REACTIONS (3)
  - Drug interaction [Unknown]
  - Acute kidney injury [Unknown]
  - Hyperkalaemia [Recovered/Resolved]

NARRATIVE: CASE EVENT DATE: 20141106
